FAERS Safety Report 22778597 (Version 14)
Quarter: 2025Q4

REPORT INFORMATION
  Report Type: Report from Study
  Country: US (occurrence: US)
  Receive Date: 20230802
  Receipt Date: 20251218
  Transmission Date: 20260117
  Serious: Yes (Hospitalization, Other)
  Sender: TAKEDA
  Company Number: US-TAKEDA-2022TUS074921

PATIENT
  Age: 69 Year
  Sex: Female

DRUGS (3)
  1. HUMAN IMMUNOGLOBULIN G [Suspect]
     Active Substance: HUMAN IMMUNOGLOBULIN G
     Indication: Primary immunodeficiency syndrome
     Dosage: UNK
  2. HYQVIA [Suspect]
     Active Substance: HUMAN IMMUNOGLOBULIN G\HYALURONIDASE (HUMAN RECOMBINANT)
     Indication: Hypogammaglobulinaemia
     Dosage: 45 GRAM, MONTHLY
  3. HYQVIA [Suspect]
     Active Substance: HUMAN IMMUNOGLOBULIN G\HYALURONIDASE (HUMAN RECOMBINANT)
     Indication: Primary immunodeficiency syndrome
     Dosage: UNK

REACTIONS (29)
  - Blood pressure decreased [Unknown]
  - Polyarthritis [Unknown]
  - Femoral nerve injury [Unknown]
  - Pneumonia [Unknown]
  - Cardiac failure congestive [Unknown]
  - Thrombosis [Recovered/Resolved]
  - Incision site haemorrhage [Unknown]
  - Fall [Unknown]
  - Body temperature decreased [Unknown]
  - Eye pain [Unknown]
  - Chills [Unknown]
  - Headache [Unknown]
  - Fatigue [Unknown]
  - Dizziness [Unknown]
  - Arthritis [Unknown]
  - Post procedural infection [Unknown]
  - General physical health deterioration [Unknown]
  - Localised infection [Unknown]
  - Staphylococcal infection [Unknown]
  - Infusion site discharge [Recovered/Resolved]
  - Swelling [Not Recovered/Not Resolved]
  - Abdominal distension [Unknown]
  - Asthenia [Unknown]
  - Pain [Not Recovered/Not Resolved]
  - Erythema [Unknown]
  - Weight decreased [Unknown]
  - Sciatica [Unknown]
  - Arthropathy [Unknown]
  - Rotator cuff syndrome [Unknown]

NARRATIVE: CASE EVENT DATE: 20231207
